FAERS Safety Report 13314648 (Version 1)
Quarter: 2017Q1

REPORT INFORMATION
  Report Type: Spontaneous
  Country: FR (occurrence: FR)
  Receive Date: 20170309
  Receipt Date: 20170309
  Transmission Date: 20170428
  Serious: Yes (Life-Threatening, Hospitalization, Congenital Anomaly)
  Sender: FDA-Public Use
  Company Number: FR-ELI_LILLY_AND_COMPANY-FR201703000819

PATIENT
  Sex: Female

DRUGS (4)
  1. ZOLOFT [Suspect]
     Active Substance: SERTRALINE HYDROCHLORIDE
     Indication: PRODUCT USED FOR UNKNOWN INDICATION
     Dosage: 50 MG, QD
     Route: 064
     Dates: start: 20140930, end: 20150624
  2. NOZINAN                            /00038601/ [Suspect]
     Active Substance: LEVOMEPROMAZINE
     Indication: SCHIZOPHRENIA
     Dosage: 25 MG, UNK
     Route: 064
     Dates: start: 20140930, end: 20150625
  3. ZYPREXA [Suspect]
     Active Substance: OLANZAPINE
     Indication: SCHIZOPHRENIA
     Dosage: 10 MG, QD
     Route: 064
     Dates: start: 20140930, end: 20150624
  4. TRANXENE T-TAB [Suspect]
     Active Substance: CLORAZEPATE DIPOTASSIUM
     Indication: SCHIZOPHRENIA
     Dosage: 40 MG, QD
     Route: 064
     Dates: start: 20140930, end: 20150624

REACTIONS (14)
  - Tremor [Unknown]
  - Temperature difference of extremities [Unknown]
  - Exposure during pregnancy [Unknown]
  - Foetal cardiac disorder [Unknown]
  - Hypotonia neonatal [Recovered/Resolved]
  - Hypervigilance [Unknown]
  - Drug withdrawal syndrome neonatal [Unknown]
  - Apgar score low [Unknown]
  - Feeding disorder [Unknown]
  - Ventricular septal defect [Unknown]
  - Anaemia [Unknown]
  - Neonatal respiratory distress syndrome [Recovered/Resolved]
  - Meconium aspiration syndrome [Unknown]
  - Gastrooesophageal reflux disease [Unknown]

NARRATIVE: CASE EVENT DATE: 20140930
